FAERS Safety Report 5446314-8 (Version None)
Quarter: 2007Q3

REPORT INFORMATION
  Report Type: 
  Country: None (occurrence: None)
  Receive Date: 20070907
  Receipt Date: 20070827
  Transmission Date: 20080115
  Serious: Yes (Hospitalization)
  Sender: FDA-Public Use
  Company Number: JP-ASTRAZENECA-2007SE03437

PATIENT
  Age: 24460 Day
  Sex: Male
  Weight: 58 kg

DRUGS (4)
  1. CANDESARTAN CILEXETIL [Suspect]
     Indication: CARDIAC FAILURE CHRONIC
     Route: 048
     Dates: start: 20070515, end: 20070522
  2. LASIX [Concomitant]
     Route: 048
     Dates: start: 20070419
  3. ALDACTONE [Concomitant]
     Route: 048
     Dates: start: 20070419
  4. BISOPROLOL FUMARATE [Concomitant]
     Route: 048
     Dates: start: 20070419

REACTIONS (1)
  - HYPERTHERMIA [None]
